FAERS Safety Report 20834979 (Version 7)
Quarter: 2023Q4

REPORT INFORMATION
  Report Type: Spontaneous
  Country: US (occurrence: US)
  Receive Date: 20220516
  Receipt Date: 20231211
  Transmission Date: 20240110
  Serious: No
  Sender: FDA-Public Use
  Company Number: US-PFIZER INC-202200698311

PATIENT
  Age: 74 Year
  Sex: Male
  Weight: 72.575 kg

DRUGS (2)
  1. EUCRISA [Suspect]
     Active Substance: CRISABOROLE
     Indication: Rash
     Dosage: TO AA 1-2 TIMES DAILY
     Route: 061
  2. EUCRISA [Suspect]
     Active Substance: CRISABOROLE
     Dosage: 2X/DAY (100 G TUBE)
     Route: 061

REACTIONS (2)
  - Off label use [Unknown]
  - Condition aggravated [Unknown]
